FAERS Safety Report 11881340 (Version 3)
Quarter: 2017Q2

REPORT INFORMATION
  Report Type: Spontaneous
  Country: AR (occurrence: AR)
  Receive Date: 20151231
  Receipt Date: 20170427
  Transmission Date: 20170829
  Serious: Yes (Other)
  Sender: FDA-Public Use
  Company Number: AR-AMGEN-ARGSP2015137802

PATIENT
  Age: 54 Year
  Sex: Female

DRUGS (4)
  1. LOTRIAL [Concomitant]
     Active Substance: ENALAPRIL MALEATE
     Dosage: UNK
     Dates: start: 201505
  2. OMEPRAZOL [Concomitant]
     Active Substance: OMEPRAZOLE
     Dosage: UNK
  3. DELTISONA [Concomitant]
     Dosage: UNK
     Dates: start: 2015
  4. ENBREL [Suspect]
     Active Substance: ETANERCEPT
     Indication: RHEUMATOID ARTHRITIS
     Dosage: 50 MG, EVERY 15 DAYS
     Route: 065
     Dates: start: 20050419

REACTIONS (4)
  - Visual impairment [Not Recovered/Not Resolved]
  - Product use issue [Unknown]
  - Injection site pain [Unknown]
  - Cataract [Recovered/Resolved]

NARRATIVE: CASE EVENT DATE: 20050419
